FAERS Safety Report 6463002-X (Version None)
Quarter: 2009Q4

REPORT INFORMATION
  Report Type: 
  Country: None (occurrence: None)
  Receive Date: 20091123
  Receipt Date: 20091109
  Transmission Date: 20100525
  Serious: Yes (Death, Hospitalization)
  Sender: FDA-Public Use
  Company Number: 2009AC000391

PATIENT
  Age: 68 Year
  Sex: Female
  Weight: 94 kg

DRUGS (24)
  1. DIGOXIN [Suspect]
     Dosage: 0.125 MG;QD;PO
     Route: 048
     Dates: start: 20071227
  2. DIGOXIN [Suspect]
     Dosage: 0.125 MG;QD;PO
     Route: 048
  3. POTASSIUM [Concomitant]
  4. AMIODARONE HCL [Concomitant]
  5. ATACAND [Concomitant]
  6. FUROSEMIDE [Concomitant]
  7. WARFARIN SODIUM [Concomitant]
  8. NYSTATIN POWER [Concomitant]
  9. PROCRIT [Concomitant]
  10. FERROUS SULFATE TAB [Concomitant]
  11. ELCON [Concomitant]
  12. RAGLAN [Concomitant]
  13. RYTHMOL [Concomitant]
  14. PREVACID [Concomitant]
  15. LEVOTHYROXINE SODIUM [Concomitant]
  16. LISINOPRIL [Concomitant]
  17. MAALOX [Concomitant]
  18. MILK OF MAGNESIA TAB [Concomitant]
  19. PERIDEX [Concomitant]
  20. CLARINEX [Concomitant]
  21. LASIX [Concomitant]
  22. KLOR-CON [Concomitant]
  23. COUMADIN [Concomitant]
  24. ALTACE [Concomitant]

REACTIONS (22)
  - ANAEMIA [None]
  - CARDIAC FAILURE [None]
  - CARDIOACTIVE DRUG LEVEL DECREASED [None]
  - CARDIOACTIVE DRUG LEVEL INCREASED [None]
  - DYSPHAGIA [None]
  - DYSPNOEA [None]
  - ECONOMIC PROBLEM [None]
  - ECZEMA [None]
  - GENERAL PHYSICAL HEALTH DETERIORATION [None]
  - HYPOTENSION [None]
  - HYPOTHYROIDISM [None]
  - LOBAR PNEUMONIA [None]
  - MITRAL VALVE DISEASE MIXED [None]
  - MITRAL VALVE INCOMPETENCE [None]
  - MULTIPLE INJURIES [None]
  - OEDEMA [None]
  - OEDEMA PERIPHERAL [None]
  - PYREXIA [None]
  - SURGERY [None]
  - TRICUSPID VALVE INCOMPETENCE [None]
  - UNEVALUABLE EVENT [None]
  - WEIGHT INCREASED [None]
